FAERS Safety Report 9423335 (Version 1)
Quarter: 2013Q3

REPORT INFORMATION
  Report Type: Spontaneous
  Country: JP (occurrence: JP)
  Receive Date: 20130726
  Receipt Date: 20130726
  Transmission Date: 20140515
  Serious: Yes (Other)
  Sender: FDA-Public Use
  Company Number: JP-ABBOTT-13P-087-1123983-00

PATIENT
  Age: 49 Year
  Sex: Female
  Weight: 50 kg

DRUGS (12)
  1. LEVOBUPIVACAINE [Suspect]
     Indication: ANALGESIC THERAPY
     Dosage: POPSCAINE 0.25% INJECTION 25MG/10ML, 10MG/H
     Route: 008
     Dates: end: 20130705
  2. PROPOFOL [Concomitant]
     Indication: INDUCTION OF ANAESTHESIA
     Route: 042
  3. FENTANYL [Concomitant]
     Indication: ANALGESIC THERAPY
     Route: 042
  4. FENTANYL [Concomitant]
     Route: 008
     Dates: start: 20130704, end: 20130705
  5. ESLAX [Concomitant]
     Indication: HYPOTONIA
     Route: 042
  6. ESLAX [Concomitant]
     Dosage: 25MG/H
     Route: 042
     Dates: start: 20130704, end: 20130704
  7. ULTIVA [Concomitant]
     Indication: ANALGESIC THERAPY
     Dosage: 300 MICROG/H
     Route: 042
     Dates: start: 20130704, end: 20130704
  8. CEFAZOLIN [Concomitant]
     Indication: INFECTION PROPHYLAXIS
     Route: 042
     Dates: start: 20130704, end: 20130704
  9. ROPION [Concomitant]
     Indication: ANALGESIC THERAPY
     Route: 042
  10. PRIMPERAN [Concomitant]
     Indication: ANTIEMETIC SUPPORTIVE CARE
     Route: 042
     Dates: start: 20130704
  11. BRIDION [Concomitant]
     Indication: ANAESTHESIA REVERSAL
     Route: 042
     Dates: start: 20130704
  12. DROLEPTAN [Concomitant]
     Indication: ANTIEMETIC SUPPORTIVE CARE
     Route: 042
     Dates: start: 20130704, end: 20130705

REACTIONS (2)
  - Tremor [Recovering/Resolving]
  - Pyrexia [Unknown]
